FAERS Safety Report 14319266 (Version 2)
Quarter: 2018Q1

REPORT INFORMATION
  Report Type: Report from Study
  Country: BR (occurrence: BR)
  Receive Date: 20171222
  Receipt Date: 20180326
  Transmission Date: 20180509
  Serious: Yes (Other)
  Sender: FDA-Public Use
  Company Number: PHHY2017BR189966

PATIENT
  Sex: Female
  Weight: 78 kg

DRUGS (4)
  1. FORASEQ [Suspect]
     Active Substance: BUDESONIDE\FORMOTEROL FUMARATE
     Indication: ASTHMA
     Dosage: 1 DF (BUDESONIDE 400 UG AND FORMOTEROL FUMARATE 12 UG ), QD (3 YEARS AGO)
     Route: 055
     Dates: end: 2017
  2. FOSTER [Concomitant]
     Active Substance: BECLOMETHASONE\FORMOTEROL
     Indication: ASTHMA
     Dosage: 1 DF, QD (BECLOMETASONE DIPROPIONATE 100 MCG, FORMOTEROL FUMARATE DIHYDRATE 6 MCG)
     Route: 055
     Dates: start: 201801
  3. LOSARTAN. [Concomitant]
     Active Substance: LOSARTAN
     Indication: HYPERTENSION
     Dosage: 2 DF, QD OVER 6 YEARS AGO
     Route: 048
  4. HYDROCHLOROTHIAZIDE. [Concomitant]
     Active Substance: HYDROCHLOROTHIAZIDE
     Indication: HYPERTENSION
     Dosage: 1 DF, QD START OVER 6 YEARS AGO
     Route: 048

REACTIONS (14)
  - Productive cough [Recovering/Resolving]
  - Pain [Recovering/Resolving]
  - Dyspnoea [Recovering/Resolving]
  - Pyrexia [Recovering/Resolving]
  - Fatigue [Not Recovered/Not Resolved]
  - Sneezing [Unknown]
  - Nasopharyngitis [Not Recovered/Not Resolved]
  - Viral infection [Recovering/Resolving]
  - Asthmatic crisis [Unknown]
  - Lung disorder [Unknown]
  - Bronchitis [Unknown]
  - Influenza [Recovering/Resolving]
  - Rhinorrhoea [Unknown]
  - Cough [Recovering/Resolving]
